FAERS Safety Report 7629800-1 (Version None)
Quarter: 2011Q3

REPORT INFORMATION
  Report Type: 
  Country: None (occurrence: None)
  Receive Date: 20110722
  Receipt Date: 20110715
  Transmission Date: 20111222
  Serious: Yes (Hospitalization)
  Sender: FDA-Public Use
  Company Number: JP-PFIZER INC-2011160213

PATIENT

DRUGS (1)
  1. LYRICA [Suspect]
     Dosage: UNK
     Route: 048

REACTIONS (2)
  - GAMMA-GLUTAMYLTRANSFERASE INCREASED [None]
  - CHROMATURIA [None]
